FAERS Safety Report 17654382 (Version 2)
Quarter: 2020Q2

REPORT INFORMATION
  Report Type: Spontaneous
  Country: BR (occurrence: BR)
  Receive Date: 20200410
  Receipt Date: 20200416
  Transmission Date: 20200713
  Serious: Yes (Other)
  Sender: FDA-Public Use
  Company Number: BR-GLAXOSMITHKLINE-BR2020GSK062502

PATIENT
  Age: 62 Year
  Sex: Male

DRUGS (1)
  1. NIQUITIN [Suspect]
     Active Substance: NICOTINE
     Indication: SMOKING CESSATION THERAPY
     Dosage: 4 MG
     Route: 048
     Dates: start: 20120812

REACTIONS (2)
  - Incorrect product administration duration [Unknown]
  - Drug dependence [Unknown]

NARRATIVE: CASE EVENT DATE: 2012
